FAERS Safety Report 19521971 (Version 2)
Quarter: 2021Q3

REPORT INFORMATION
  Report Type: Spontaneous
  Country: BE (occurrence: BE)
  Receive Date: 20210712
  Receipt Date: 20210721
  Transmission Date: 20211014
  Serious: Yes (Other)
  Sender: FDA-Public Use
  Company Number: BE-MYLANLABS-2021M1040452

PATIENT
  Age: 59 Year
  Sex: Female

DRUGS (2)
  1. PACLITAXEL. [Suspect]
     Active Substance: PACLITAXEL
     Indication: TRIPLE NEGATIVE BREAST CANCER
     Dosage: UNK
     Route: 065
     Dates: start: 201902
  2. TECENTRIQ [Suspect]
     Active Substance: ATEZOLIZUMAB
     Indication: TRIPLE NEGATIVE BREAST CANCER
     Dosage: 840 MILLIGRAM (CONTINUED)
     Route: 042
     Dates: start: 201902

REACTIONS (1)
  - Metastases to lymph nodes [Recovered/Resolved]

NARRATIVE: CASE EVENT DATE: 20190625
